FAERS Safety Report 9529330 (Version 1)
Quarter: 2013Q3

REPORT INFORMATION
  Report Type: Spontaneous
  Country: US (occurrence: US)
  Receive Date: 20130917
  Receipt Date: 20130917
  Transmission Date: 20140515
  Serious: Yes (Other)
  Sender: FDA-Public Use
  Company Number: US-PERRIGO-13US009301

PATIENT
  Age: 14 Year
  Sex: Male

DRUGS (1)
  1. IBUPROFEN 200 MG 604 [Suspect]
     Indication: OVERDOSE
     Dosage: UNK, UNK
     Route: 048

REACTIONS (2)
  - Overdose [Unknown]
  - Drug level above therapeutic [Unknown]
